FAERS Safety Report 4996274-9 (Version None)
Quarter: 2006Q2

REPORT INFORMATION
  Report Type: 
  Country: None (occurrence: None)
  Receive Date: 20060509
  Receipt Date: 20060418
  Transmission Date: 20061013
  Serious: Yes (Disabling)
  Sender: FDA-Public Use
  Company Number: 2006AC00775

PATIENT
  Age: 725 Month
  Sex: Female
  Weight: 75 kg

DRUGS (4)
  1. ARIMIDEX [Suspect]
     Indication: BREAST NEOPLASM
     Route: 048
     Dates: start: 20041101
  2. LEXOTAN [Concomitant]
     Indication: DEPRESSION
     Dosage: BEFORE 2004
     Route: 048
  3. TRAZOLAN [Concomitant]
     Indication: DEPRESSION
     Dosage: BEFORE 2004
     Route: 048
  4. DIXARIT [Concomitant]
     Indication: HOT FLUSH
     Route: 048
     Dates: start: 20040501

REACTIONS (1)
  - TENDON RUPTURE [None]
